FAERS Safety Report 4311636-0 (Version None)
Quarter: 2004Q1

REPORT INFORMATION
  Report Type: 
  Country: None (occurrence: None)
  Receive Date: 20040304
  Receipt Date: 20040225
  Transmission Date: 20041129
  Serious: Yes (Life-Threatening)
  Sender: FDA-Public Use
  Company Number: PHBS2004JP02667

PATIENT
  Age: 54 Year
  Sex: Male

DRUGS (1)
  1. SIMULECT [Suspect]
     Indication: RENAL TRANSPLANT

REACTIONS (1)
  - INTESTINAL ISCHAEMIA [None]
